FAERS Safety Report 8906372 (Version 1)
Quarter: 2012Q4

REPORT INFORMATION
  Report Type: Spontaneous
  Country: US (occurrence: None)
  Receive Date: 20121112
  Receipt Date: 20121112
  Transmission Date: 20130627
  Serious: No
  Sender: FDA-Public Use
  Company Number: None

PATIENT
  Age: 88 Year
  Sex: Female
  Weight: 78.02 kg

DRUGS (1)
  1. LYRICA [Suspect]
     Indication: DIABETIC NEUROPATHY
     Dosage: 75 MG 2/DAY
     Dates: start: 201210

REACTIONS (3)
  - Oedema peripheral [None]
  - Pain in extremity [None]
  - Anger [None]
